FAERS Safety Report 12157466 (Version 1)
Quarter: 2016Q1

REPORT INFORMATION
  Report Type: Spontaneous
  Country: None (occurrence: KR)
  Receive Date: 20160308
  Receipt Date: 20160308
  Transmission Date: 20160526
  Serious: Yes (Other)
  Sender: FDA-Public Use
  Company Number: KR-HOSPIRA-3200264

PATIENT
  Age: 43 Year
  Sex: Female

DRUGS (3)
  1. LAPATINIB [Concomitant]
     Active Substance: LAPATINIB
     Indication: INVASIVE DUCTAL BREAST CARCINOMA
     Dosage: DAILY
     Dates: start: 201301
  2. CAPECITABINE. [Concomitant]
     Active Substance: CAPECITABINE
     Indication: INVASIVE DUCTAL BREAST CARCINOMA
     Dosage: ON DAYS 1 THROUGH 14 OF A 21-DAY CYCLE
     Dates: start: 201301
  3. PACLITAXEL. [Suspect]
     Active Substance: PACLITAXEL
     Indication: INVASIVE DUCTAL BREAST CARCINOMA
     Dosage: WEEKLY

REACTIONS (3)
  - Amnesia [Not Recovered/Not Resolved]
  - Somnolence [Unknown]
  - Nausea [Unknown]
